FAERS Safety Report 10220787 (Version 1)
Quarter: 2014Q2

REPORT INFORMATION
  Report Type: Spontaneous
  Country: US (occurrence: US)
  Receive Date: 20140606
  Receipt Date: 20140606
  Transmission Date: 20141212
  Serious: No
  Sender: FDA-Public Use
  Company Number: US-PFIZER INC-2014154669

PATIENT
  Age: 69 Year
  Sex: Female
  Weight: 78.46 kg

DRUGS (6)
  1. PRISTIQ [Suspect]
     Indication: DEPRESSION
     Dosage: 50 MG, 1X/DAY
     Route: 048
  2. PRISTIQ [Suspect]
     Dosage: 100 MG, 1X/DAY
     Route: 048
     Dates: end: 201405
  3. CHLORTHALIDONE [Concomitant]
     Indication: FLUID IMBALANCE
     Dosage: 25 MG, 1X/DAY (IN THE MORNING)
  4. CETIRIZINE [Concomitant]
     Dosage: 10 MG, 1X/DAY (IN THE MORNING)
  5. OMEPRAZOLE [Concomitant]
     Dosage: 20 MG, 1X/DAY (IN THE MORNING)
  6. PREMARIN [Concomitant]
     Dosage: 1.25 MG, 1X/DAY (IN THE MORNING)

REACTIONS (3)
  - Feeling abnormal [Unknown]
  - Stress [Unknown]
  - Nasopharyngitis [Unknown]
